FAERS Safety Report 4311713-4 (Version None)
Quarter: 2004Q1

REPORT INFORMATION
  Report Type: 
  Country: None (occurrence: None)
  Receive Date: 20040302
  Receipt Date: 20031118
  Transmission Date: 20041129
  Serious: No
  Sender: FDA-Public Use
  Company Number: 200326411BWH

PATIENT
  Age: 65 Year
  Sex: Male

DRUGS (6)
  1. LEVITRA [Suspect]
     Indication: ERECTILE DYSFUNCTION
     Dosage: 20 MG, ORAL
     Route: 048
     Dates: start: 20031019
  2. NORVASC [Concomitant]
  3. COZAAR [Concomitant]
  4. LOPRESSOR [Concomitant]
  5. VERELAN [Concomitant]
  6. FLOMAX MR ^YAMANOUCHI^ [Concomitant]

REACTIONS (2)
  - COUGH [None]
  - NASAL CONGESTION [None]
